FAERS Safety Report 19569935 (Version 1)
Quarter: 2021Q3

REPORT INFORMATION
  Report Type: Spontaneous
  Country: CA (occurrence: CA)
  Receive Date: 20210715
  Receipt Date: 20210715
  Transmission Date: 20211014
  Serious: Yes (Other)
  Sender: FDA-Public Use
  Company Number: CA-PFIZER INC-2021821304

PATIENT
  Sex: Male

DRUGS (1)
  1. BEVACIZUMAB. [Suspect]
     Active Substance: BEVACIZUMAB
     Indication: DIABETIC RETINAL OEDEMA
     Route: 065

REACTIONS (5)
  - Off label use [Unknown]
  - Uveitis [Unknown]
  - Intentional product use issue [Unknown]
  - Subretinal fluid [Unknown]
  - Intraocular pressure increased [Unknown]
